FAERS Safety Report 8059638-5 (Version None)
Quarter: 2012Q1

REPORT INFORMATION
  Report Type: 
  Country: None (occurrence: None)
  Receive Date: 20120120
  Receipt Date: 20120109
  Transmission Date: 20120608
  Serious: No
  Sender: FDA-Public Use
  Company Number: PHHY2011CA108128

PATIENT

DRUGS (5)
  1. ALISKIREN [Suspect]
     Dosage: 300 MG, UNK
  2. METFORMIN HCL [Concomitant]
  3. CALCIUM CHANNEL BLOCKERS [Concomitant]
  4. CRESTOR [Concomitant]
  5. BETA BLOCKING AGENTS [Concomitant]

REACTIONS (1)
  - BLOOD PRESSURE INCREASED [None]
